FAERS Safety Report 8255032-2 (Version None)
Quarter: 2012Q2

REPORT INFORMATION
  Report Type: 
  Country: None (occurrence: None)
  Receive Date: 20120403
  Receipt Date: 20120328
  Transmission Date: 20120825
  Serious: No
  Sender: FDA-Public Use
  Company Number: US-BAYER-2012-031779

PATIENT
  Age: 71 Year
  Sex: Female
  Weight: 84 kg

DRUGS (4)
  1. ALEVE (CAPLET) [Suspect]
     Dosage: 2 DF, QD
     Route: 048
     Dates: start: 20111001, end: 20111201
  2. ALEVE (CAPLET) [Suspect]
     Dosage: 2 DF, QD
     Route: 048
     Dates: start: 20111201, end: 20120201
  3. ALEVE (CAPLET) [Suspect]
     Indication: ARTHRITIS
     Dosage: 2 DF, QD
     Route: 048
     Dates: start: 20120201
  4. MULTI-VITAMINS [Concomitant]

REACTIONS (1)
  - ARTHRITIS [None]
